FAERS Safety Report 7370109-1 (Version None)
Quarter: 2011Q1

REPORT INFORMATION
  Report Type: 
  Country: None (occurrence: None)
  Receive Date: 20110323
  Receipt Date: 20110310
  Transmission Date: 20110831
  Serious: Yes (Other)
  Sender: FDA-Public Use
  Company Number: PHHY2010BR57447

PATIENT
  Sex: Female

DRUGS (1)
  1. DIOVAN HCT [Suspect]
     Dosage: 160/25 MG
     Route: 048

REACTIONS (3)
  - CEREBROVASCULAR ACCIDENT [None]
  - HYPERTENSION [None]
  - MALAISE [None]
